FAERS Safety Report 17329278 (Version 1)
Quarter: 2020Q1

REPORT INFORMATION
  Report Type: Spontaneous
  Country: US (occurrence: US)
  Receive Date: 20200127
  Receipt Date: 20200127
  Transmission Date: 20200409
  Serious: No
  Sender: FDA-Public Use
  Company Number: None

PATIENT
  Age: 23 Year
  Sex: Female
  Weight: 60.75 kg

DRUGS (1)
  1. ICY HOT MEDICATED NO MESS APPLICATOR [Suspect]
     Active Substance: MENTHOL
     Indication: TENDONITIS
     Dosage: ?
     Route: 061

REACTIONS (5)
  - Erythema [None]
  - Skin burning sensation [None]
  - Skin swelling [None]
  - Hyperaesthesia [None]
  - Pain [None]

NARRATIVE: CASE EVENT DATE: 20200126
